FAERS Safety Report 8107578-5 (Version None)
Quarter: 2012Q1

REPORT INFORMATION
  Report Type: 
  Country: None (occurrence: None)
  Receive Date: 20120202
  Receipt Date: 20120125
  Transmission Date: 20120608
  Serious: Yes (Hospitalization, Disabling)
  Sender: FDA-Public Use
  Company Number: US-BAYER-2011-046013

PATIENT
  Age: 23 Year
  Sex: Female
  Weight: 52.154 kg

DRUGS (1)
  1. YAZ [Suspect]
     Indication: ORAL CONTRACEPTION
     Dosage: UNK
     Dates: start: 20090401, end: 20090801

REACTIONS (6)
  - DEFORMITY [None]
  - PAIN [None]
  - INJURY [None]
  - QUALITY OF LIFE DECREASED [None]
  - TRANSIENT ISCHAEMIC ATTACK [None]
  - CEREBROVASCULAR ACCIDENT [None]
